FAERS Safety Report 7322064-8 (Version None)
Quarter: 2011Q1

REPORT INFORMATION
  Report Type: 
  Country: None (occurrence: None)
  Receive Date: 20110228
  Receipt Date: 20110214
  Transmission Date: 20110831
  Serious: Yes (Other)
  Sender: FDA-Public Use
  Company Number: US-CELGENEUS-163-21880-10120401

PATIENT
  Sex: Female

DRUGS (3)
  1. ASPIRIN [Concomitant]
     Route: 065
  2. REVLIMID [Suspect]
     Dosage: 10 MILLIGRAM
     Route: 048
     Dates: start: 20101101
  3. REVLIMID [Suspect]
     Dosage: 10 MILLIGRAM
     Route: 048
     Dates: start: 20110204

REACTIONS (6)
  - HAEMORRHAGE [None]
  - ASTHENIA [None]
  - BACK PAIN [None]
  - CONTUSION [None]
  - PALLOR [None]
  - VARICOSE VEIN [None]
